FAERS Safety Report 18687990 (Version 1)
Quarter: 2020Q4

REPORT INFORMATION
  Report Type: Spontaneous
  Country: US (occurrence: US)
  Receive Date: 20201230
  Receipt Date: 20201230
  Transmission Date: 20210114
  Serious: No
  Sender: FDA-Public Use
  Company Number: None

PATIENT
  Age: 49 Year
  Sex: Female

DRUGS (2)
  1. DALFAMPRIDINE. [Suspect]
     Active Substance: DALFAMPRIDINE
     Indication: MULTIPLE SCLEROSIS
     Route: 048
  2. AMPYRA 10 MG ER TABLET [Concomitant]
     Dates: start: 20160718, end: 20201103

REACTIONS (2)
  - Therapy interrupted [None]
  - Product availability issue [None]

NARRATIVE: CASE EVENT DATE: 20201229
